FAERS Safety Report 15330766 (Version 3)
Quarter: 2018Q3

REPORT INFORMATION
  Report Type: Report from Study
  Country: None (occurrence: US)
  Receive Date: 20180829
  Receipt Date: 20180921
  Transmission Date: 20181010
  Serious: Yes (Hospitalization)
  Sender: FDA-Public Use
  Company Number: US-ABBVIE-18S-163-2461613-00

PATIENT
  Age: 69 Year
  Sex: Female

DRUGS (1)
  1. DUOPA [Suspect]
     Active Substance: CARBIDOPA\LEVODOPA
     Indication: PARKINSON^S DISEASE
     Route: 050
     Dates: start: 201508, end: 2018

REACTIONS (7)
  - Intentional medical device removal by patient [Unknown]
  - Postoperative care [Unknown]
  - Hip surgery [Not Recovered/Not Resolved]
  - Sepsis [Recovering/Resolving]
  - Localised infection [Recovering/Resolving]
  - Gastrointestinal stoma complication [Unknown]
  - Postoperative care [Unknown]

NARRATIVE: CASE EVENT DATE: 201807
